FAERS Safety Report 18364672 (Version 1)
Quarter: 2020Q3

REPORT INFORMATION
  Report Type: Spontaneous
  Country: US (occurrence: US)
  Receive Date: 20200928
  Receipt Date: 20200928
  Transmission Date: 20201103
  Serious: Yes (Other)
  Sender: FDA-Public Use
  Company Number: None

PATIENT
  Age: 6 Decade
  Sex: Male

DRUGS (8)
  1. INTERFERON ALFA NOS [Suspect]
     Active Substance: INTERFERON ALFA-2A OR INTERFERON ALFA-2B
     Indication: COVID-19
     Dates: start: 2020
  2. LEVOFLOXACIN. [Suspect]
     Active Substance: LEVOFLOXACIN
     Indication: COVID-19
     Route: 042
     Dates: start: 2020
  3. TANREQING [HERBALS] [Suspect]
     Active Substance: HERBALS
     Indication: COVID-19
     Route: 048
     Dates: start: 2020
  4. XUEBIJING [Suspect]
     Active Substance: HERBALS
     Indication: COVID-19
     Dates: start: 2020
  5. THYMOSIN ALPHA 1 [Suspect]
     Active Substance: THYMALFASIN
     Indication: COVID-19
     Dates: start: 2020
  6. LOPINAVIR [Suspect]
     Active Substance: LOPINAVIR
     Indication: COVID-19 PNEUMONIA
     Route: 048
     Dates: start: 2020
  7. IMMUNOGLOBULINS, INTRAVENOUS [Suspect]
     Active Substance: HUMAN IMMUNOGLOBULIN G
     Indication: COVID-19
     Route: 042
     Dates: start: 2020
  8. METHYLPREDNISOLONE. [Suspect]
     Active Substance: METHYLPREDNISOLONE
     Indication: COVID-19
     Dates: start: 2020

REACTIONS (5)
  - Plasmapheresis [None]
  - Cord blood transplant therapy [None]
  - Product use issue [None]
  - Product use in unapproved indication [None]
  - Multi-organ disorder [None]
